FAERS Safety Report 4866399-7 (Version None)
Quarter: 2005Q4

REPORT INFORMATION
  Report Type: 
  Country: None (occurrence: None)
  Receive Date: 20051227
  Receipt Date: 20051215
  Transmission Date: 20060501
  Serious: Yes (Hospitalization)
  Sender: FDA-Public Use
  Company Number: GB-MERCK-0512GBR00119

PATIENT
  Age: 53 Year
  Sex: Female
  Weight: 80 kg

DRUGS (5)
  1. EMEND [Suspect]
     Route: 048
  2. CYCLOPHOSPHAMIDE [Concomitant]
     Route: 065
  3. FLUOROURACIL [Concomitant]
     Route: 065
  4. PEGFILGRASTIM [Suspect]
     Route: 065
  5. DEXAMETHASONE [Concomitant]
     Route: 065

REACTIONS (2)
  - HEADACHE [None]
  - PYREXIA [None]
